FAERS Safety Report 4645023-2 (Version None)
Quarter: 2005Q2

REPORT INFORMATION
  Report Type: 
  Country: None (occurrence: None)
  Receive Date: 20050422
  Receipt Date: 20050412
  Transmission Date: 20051028
  Serious: Yes (Death)
  Sender: FDA-Public Use
  Company Number: 2005040038

PATIENT
  Age: 28 Year
  Sex: Female

DRUGS (8)
  1. AROMASIN [Suspect]
     Indication: BREAST CANCER
     Dosage: 25 MG, ORAL
     Route: 048
     Dates: start: 20041203, end: 20050223
  2. ANASTROZOLE (ANASTROZOLE) [Concomitant]
  3. MORPHINE SULFATE [Concomitant]
  4. KETOPROFEN [Concomitant]
  5. PYRIDOXAL (PYRIDOXAL) [Concomitant]
  6. CAPECITABINE (CAPECITABINE) [Concomitant]
  7. ANASTROZOLE (ANASTROZOLE) [Concomitant]
  8. DOXORUBICIN HYDROCHLORIDE [Concomitant]

REACTIONS (3)
  - CARDIAC ARREST [None]
  - COUGH [None]
  - DYSPNOEA [None]
